FAERS Safety Report 25256841 (Version 1)
Quarter: 2025Q2

REPORT INFORMATION
  Report Type: Spontaneous
  Country: BE (occurrence: BE)
  Receive Date: 20250430
  Receipt Date: 20250430
  Transmission Date: 20250716
  Serious: Yes (Hospitalization)
  Sender: FRESENIUS KABI
  Company Number: None

PATIENT
  Age: 27 Year
  Sex: Female
  Weight: 52 kg

DRUGS (3)
  1. PIPERACILLIN AND TAZOBACTAM [Suspect]
     Active Substance: PIPERACILLIN SODIUM\TAZOBACTAM SODIUM
     Indication: Pneumonia necrotising
     Route: 042
     Dates: start: 20250318, end: 20250408
  2. DAFALGAN FORTE  1 G [Concomitant]
     Indication: Product used for unknown indication
  3. IBUPROFEN  600 mg [Concomitant]
     Indication: Product used for unknown indication

REACTIONS (7)
  - Pruritus [Recovering/Resolving]
  - Urticaria [Recovering/Resolving]
  - Swelling face [Recovering/Resolving]
  - Hepatitis [Recovering/Resolving]
  - Ear swelling [Recovering/Resolving]
  - Lip swelling [Recovering/Resolving]
  - Flushing [Recovering/Resolving]

NARRATIVE: CASE EVENT DATE: 20250403
